FAERS Safety Report 9563760 (Version 2)
Quarter: 2014Q1

REPORT INFORMATION
  Report Type: Spontaneous
  Country: US (occurrence: None)
  Receive Date: 20130926
  Receipt Date: 20140323
  Transmission Date: 20141002
  Serious: Yes (Other)
  Sender: FDA-Public Use
  Company Number: 2013-US-000944

PATIENT
  Age: 62 Year
  Sex: Male

DRUGS (2)
  1. XYREM [Suspect]
     Indication: SLEEP DISORDER
     Route: 048
     Dates: start: 20031007, end: 200311
  2. XYREM [Suspect]
     Indication: RAPID EYE MOVEMENTS SLEEP ABNORMAL
     Route: 048
     Dates: start: 20031007, end: 200311

REACTIONS (4)
  - Surgery [None]
  - Insomnia [None]
  - Off label use [None]
  - Therapy cessation [None]
